FAERS Safety Report 24603124 (Version 2)
Quarter: 2025Q2

REPORT INFORMATION
  Report Type: Report from Study
  Country: US (occurrence: US)
  Receive Date: 20241111
  Receipt Date: 20250630
  Transmission Date: 20250717
  Serious: No
  Sender: TRAVERE THERAPEUTICS
  Company Number: US-TRAVERE-2024TVT01087

PATIENT
  Age: 55 Year
  Sex: Male

DRUGS (7)
  1. FILSPARI [Suspect]
     Active Substance: SPARSENTAN
     Indication: IgA nephropathy
     Route: 048
     Dates: start: 20240806, end: 20240819
  2. FILSPARI [Suspect]
     Active Substance: SPARSENTAN
     Route: 048
     Dates: start: 20240820
  3. MESALAMINE [Suspect]
     Active Substance: MESALAMINE
     Indication: Product used for unknown indication
     Dates: start: 202410
  4. ATORVASTATIN [Concomitant]
     Active Substance: ATORVASTATIN
  5. FEBUXOSTAT [Concomitant]
     Active Substance: FEBUXOSTAT
  6. LISINOPRIL [Concomitant]
     Active Substance: LISINOPRIL
  7. PREDNISONE [Concomitant]
     Active Substance: PREDNISONE

REACTIONS (4)
  - Rash [None]
  - Pruritus [Recovering/Resolving]
  - Food allergy [Recovering/Resolving]
  - Off label use [Unknown]

NARRATIVE: CASE EVENT DATE: 20241001
